FAERS Safety Report 5536430-4 (Version None)
Quarter: 2007Q4

REPORT INFORMATION
  Report Type: 
  Country: None (occurrence: None)
  Receive Date: 20071206
  Receipt Date: 20070125
  Transmission Date: 20080405
  Serious: Yes (Hospitalization)
  Sender: FDA-Public Use
  Company Number: US-AMGEN-US201572

PATIENT
  Sex: Female
  Weight: 154 kg

DRUGS (11)
  1. ENBREL [Suspect]
     Indication: PSORIATIC ARTHROPATHY
     Route: 058
     Dates: start: 20000101
  2. PREDNISONE TAB [Suspect]
  3. NABUMETONE [Suspect]
  4. SYNTHROID [Concomitant]
  5. NORVASC [Concomitant]
  6. ALTACE [Concomitant]
  7. TOPROL-XL [Concomitant]
  8. INSULIN [Concomitant]
  9. FOSAMAX [Concomitant]
  10. PROTONIX [Concomitant]
  11. TYLENOL W/ CODEINE NO. 3 [Concomitant]

REACTIONS (3)
  - PSORIASIS [None]
  - PSORIATIC ARTHROPATHY [None]
  - UROSEPSIS [None]
